FAERS Safety Report 6829368-3 (Version None)
Quarter: 2010Q3

REPORT INFORMATION
  Report Type: 
  Country: None (occurrence: None)
  Receive Date: 20100709
  Receipt Date: 20070305
  Transmission Date: 20110219
  Serious: Yes (Other)
  Sender: FDA-Public Use
  Company Number: PFIZER INC-2007014196

PATIENT
  Sex: Female
  Weight: 54.4 kg

DRUGS (6)
  1. CHANTIX [Suspect]
     Indication: SMOKING CESSATION THERAPY
     Dates: start: 20070201, end: 20070201
  2. VICODIN [Suspect]
     Indication: PAIN
  3. OXYCONTIN [Suspect]
     Indication: PAIN
     Dates: end: 20070201
  4. DETROL LA [Concomitant]
  5. ALBUTEROL [Concomitant]
  6. ALL OTHER THERAPEUTIC PRODUCTS [Concomitant]

REACTIONS (2)
  - INTESTINAL OBSTRUCTION [None]
  - TOBACCO USER [None]
